FAERS Safety Report 6506497-5 (Version None)
Quarter: 2009Q4

REPORT INFORMATION
  Report Type: 
  Country: None (occurrence: None)
  Receive Date: 20091216
  Receipt Date: 20091202
  Transmission Date: 20100525
  Serious: Yes (Hospitalization)
  Sender: FDA-Public Use
  Company Number: 220015N09DEU

PATIENT
  Age: 6 Year
  Sex: Male
  Weight: 25 kg

DRUGS (4)
  1. SAIZEN [Suspect]
     Indication: HYPOSMIA
     Dosage: 0.6, 1 IN 1 DAYS, SUBCUTANEOUS
     Route: 058
     Dates: start: 20081209, end: 20090522
  2. HYDROCORTONE [Concomitant]
  3. LEVOTHYROXINE SODIUM [Concomitant]
  4. VALPROIC ACID [Concomitant]

REACTIONS (2)
  - CEREBRAL HYGROMA [None]
  - NEOPLASM PROGRESSION [None]
